FAERS Safety Report 4690963-1 (Version None)
Quarter: 2005Q2

REPORT INFORMATION
  Report Type: 
  Country: None (occurrence: None)
  Receive Date: 20050610
  Receipt Date: 20050531
  Transmission Date: 20051028
  Serious: Yes (Death)
  Sender: FDA-Public Use
  Company Number: S05-USA-01935-01

PATIENT
  Age: 29 Year
  Sex: Male
  Weight: 72.5755 kg

DRUGS (3)
  1. CELEXA [Suspect]
     Indication: PANIC ATTACK
     Dates: start: 20040101
  2. ALCOHOL [Suspect]
  3. DIAZEPAM [Concomitant]

REACTIONS (20)
  - ACCIDENTAL DEATH [None]
  - ATHEROSCLEROSIS [None]
  - BLOOD ALCOHOL INCREASED [None]
  - CELL DEATH [None]
  - CORONARY ARTERY OCCLUSION [None]
  - FIBROSIS [None]
  - HEPATIC FAILURE [None]
  - HEPATIC NECROSIS [None]
  - HEPATIC STEATOSIS [None]
  - HEPATOMEGALY [None]
  - MULTI-ORGAN FAILURE [None]
  - MYOCARDIAL FIBROSIS [None]
  - PANCREATIC DISORDER [None]
  - PULMONARY CONGESTION [None]
  - PULMONARY OEDEMA [None]
  - RENAL FAILURE [None]
  - RENAL TUBULAR NECROSIS [None]
  - SPLEEN CONGESTION [None]
  - SPLENOMEGALY [None]
  - TREATMENT NONCOMPLIANCE [None]
